FAERS Safety Report 7442619-X (Version None)
Quarter: 2011Q2

REPORT INFORMATION
  Report Type: 
  Country: None (occurrence: None)
  Receive Date: 20110428
  Receipt Date: 20110419
  Transmission Date: 20111010
  Serious: Yes (Other)
  Sender: FDA-Public Use
  Company Number: AU-ASTRAZENECA-2011SE22845

PATIENT
  Age: 63 Year
  Sex: Female

DRUGS (2)
  1. ARIMIDEX [Suspect]
     Route: 048
     Dates: start: 20071101
  2. CLEXANE [Concomitant]

REACTIONS (4)
  - PULMONARY EMBOLISM [None]
  - ANAEMIA [None]
  - ADENOMA BENIGN [None]
  - WEIGHT DECREASED [None]
